FAERS Safety Report 9604140 (Version 1)
Quarter: 2013Q4

REPORT INFORMATION
  Report Type: Spontaneous
  Country: AT (occurrence: AT)
  Receive Date: 20131008
  Receipt Date: 20131008
  Transmission Date: 20140711
  Serious: Yes (Death)
  Sender: FDA-Public Use
  Company Number: AT-CELGENEUS-009-POMAL-13100092

PATIENT
  Age: 78 Year
  Sex: Male

DRUGS (1)
  1. IMNOVID [Suspect]
     Indication: PLASMA CELL MYELOMA
     Route: 048

REACTIONS (2)
  - Death [Fatal]
  - Drug ineffective [Unknown]
